FAERS Safety Report 14606077 (Version 4)
Quarter: 2018Q2

REPORT INFORMATION
  Report Type: Report from Study
  Country: None (occurrence: US)
  Receive Date: 20180307
  Receipt Date: 20180509
  Transmission Date: 20180711
  Serious: Yes (Hospitalization, Other)
  Sender: FDA-Public Use
  Company Number: US-ABBVIE-18K-163-2273741-00

PATIENT
  Age: 59 Year
  Sex: Male
  Weight: 94.43 kg

DRUGS (11)
  1. LISINOPRIL. [Concomitant]
     Active Substance: LISINOPRIL
     Indication: HYPERTENSION
  2. HUMIRA [Suspect]
     Active Substance: ADALIMUMAB
     Route: 058
     Dates: start: 20180223
  3. HUMIRA [Suspect]
     Active Substance: ADALIMUMAB
     Indication: RHEUMATOID ARTHRITIS
     Dosage: DID NOT HAVE INSURANCE
     Route: 058
  4. HYDROCODONE [Suspect]
     Active Substance: HYDROCODONE
     Indication: ARTHRITIS
  5. HUMIRA [Suspect]
     Active Substance: ADALIMUMAB
     Route: 058
     Dates: start: 2017, end: 201712
  6. PRAVASTATIN. [Concomitant]
     Active Substance: PRAVASTATIN
     Indication: BLOOD CHOLESTEROL INCREASED
  7. HYDROCODONE [Suspect]
     Active Substance: HYDROCODONE
     Indication: HERPES ZOSTER
     Route: 065
     Dates: start: 2013, end: 2013
  8. HUMIRA [Suspect]
     Active Substance: ADALIMUMAB
     Route: 058
     Dates: start: 2004, end: 2006
  9. SULFASALAZINE. [Concomitant]
     Active Substance: SULFASALAZINE
     Indication: RHEUMATOID ARTHRITIS
  10. VENLAFAXINE [Concomitant]
     Active Substance: VENLAFAXINE HYDROCHLORIDE
     Indication: ANTIDEPRESSANT THERAPY
  11. ALPRAZOLAM. [Concomitant]
     Active Substance: ALPRAZOLAM
     Indication: ANXIETY

REACTIONS (19)
  - Arterial occlusive disease [Recovered/Resolved]
  - Cardiac operation [Unknown]
  - Nausea [Recovered/Resolved]
  - Pedal pulse decreased [Not Recovered/Not Resolved]
  - Rheumatoid arthritis [Recovering/Resolving]
  - Psoriasis [Recovering/Resolving]
  - Dyspnoea [Recovered/Resolved]
  - Gait disturbance [Not Recovered/Not Resolved]
  - Dyspnoea [Recovered/Resolved]
  - Herpes zoster [Recovered/Resolved]
  - Foot deformity [Not Recovered/Not Resolved]
  - Drug effect decreased [Unknown]
  - Loss of consciousness [Recovered/Resolved]
  - Arthritis [Not Recovered/Not Resolved]
  - Cataract [Not Recovered/Not Resolved]
  - Transient ischaemic attack [Recovered/Resolved]
  - Hyperhidrosis [Recovered/Resolved]
  - Cerebrovascular accident [Recovered/Resolved]
  - Constipation [Recovered/Resolved]

NARRATIVE: CASE EVENT DATE: 2009
